FAERS Safety Report 9784988 (Version 3)
Quarter: 2014Q1

REPORT INFORMATION
  Report Type: Spontaneous
  Country: IT (occurrence: IT)
  Receive Date: 20131227
  Receipt Date: 20140130
  Transmission Date: 20141002
  Serious: Yes (Other)
  Sender: FDA-Public Use
  Company Number: IT-009507513-1312ITA010926

PATIENT
  Age: 64 Year
  Sex: Female

DRUGS (1)
  1. ADRONAT 70MG COMPRESSE [Suspect]
     Indication: OSTEOPOROSIS
     Dosage: 70 MG, WEEKLY
     Route: 048
     Dates: start: 20050304, end: 20110907

REACTIONS (1)
  - Osteonecrosis [Recovered/Resolved with Sequelae]
